FAERS Safety Report 11254580 (Version 1)
Quarter: 2015Q3

REPORT INFORMATION
  Report Type: Spontaneous
  Country: BE (occurrence: BE)
  Receive Date: 20150709
  Receipt Date: 20150709
  Transmission Date: 20151125
  Serious: Yes (Hospitalization, Other)
  Sender: FDA-Public Use
  Company Number: BE-TEVA-575441ISR

PATIENT
  Age: 60 Year
  Sex: Female

DRUGS (4)
  1. FOLINIC ACID [Suspect]
     Active Substance: LEUCOVORIN
     Indication: ADENOCARCINOMA
     Dosage: DAYS 1 AND 2
     Route: 065
  2. IRINOTECAN [Suspect]
     Active Substance: IRINOTECAN
     Indication: ADENOCARCINOMA
     Dosage: DAY 1
     Route: 065
  3. FLUOROURACIL. [Suspect]
     Active Substance: FLUOROURACIL
     Indication: ADENOCARCINOMA
     Route: 040
  4. BEVACIZUMAB [Concomitant]
     Active Substance: BEVACIZUMAB
     Route: 065

REACTIONS (2)
  - Intestinal obstruction [Recovered/Resolved]
  - Mucosal inflammation [Recovered/Resolved]
